FAERS Safety Report 17663090 (Version 1)
Quarter: 2020Q2

REPORT INFORMATION
  Report Type: Spontaneous
  Country: CN (occurrence: CN)
  Receive Date: 20200414
  Receipt Date: 20200414
  Transmission Date: 20200713
  Serious: Yes (Death, Other)
  Sender: FDA-Public Use
  Company Number: CN-SUN PHARMACEUTICAL INDUSTRIES LTD-2020R1-243106

PATIENT
  Age: 44 Year
  Sex: Male

DRUGS (2)
  1. ERLOTINIB [Suspect]
     Active Substance: ERLOTINIB
     Indication: METASTASES TO CENTRAL NERVOUS SYSTEM
     Dosage: 150 MILLIGRAM, QD
     Route: 065
     Dates: start: 201701
  2. GEFITINIB. [Suspect]
     Active Substance: GEFITINIB
     Indication: METASTASES TO BONE
     Dosage: 250 MILLIGRAM, QD
     Route: 065
     Dates: start: 201604

REACTIONS (5)
  - Death [Fatal]
  - Persecutory delusion [Not Recovered/Not Resolved]
  - Sluggishness [Not Recovered/Not Resolved]
  - Hallucination [Not Recovered/Not Resolved]
  - Memory impairment [Not Recovered/Not Resolved]
